FAERS Safety Report 24273521 (Version 2)
Quarter: 2025Q3

REPORT INFORMATION
  Report Type: Spontaneous
  Country: CA (occurrence: CA)
  Receive Date: 20240902
  Receipt Date: 20250806
  Transmission Date: 20251021
  Serious: Yes (Other)
  Sender: PFIZER
  Company Number: CA-PFIZER INC-202400100138

PATIENT
  Age: 62 Year
  Sex: Female

DRUGS (11)
  1. RUXIENCE [Suspect]
     Active Substance: RITUXIMAB-PVVR
     Indication: Autoimmune uveitis
     Route: 042
     Dates: start: 20240528
  2. RUXIENCE [Suspect]
     Active Substance: RITUXIMAB-PVVR
     Indication: Retinal vasculitis
     Route: 042
     Dates: start: 20240611
  3. RUXIENCE [Suspect]
     Active Substance: RITUXIMAB-PVVR
     Indication: Autoimmune retinopathy
     Route: 042
     Dates: start: 20250124
  4. RUXIENCE [Suspect]
     Active Substance: RITUXIMAB-PVVR
     Route: 042
     Dates: start: 20250206
  5. EYLEA [Concomitant]
     Active Substance: AFLIBERCEPT
  6. EYLEA [Concomitant]
     Active Substance: AFLIBERCEPT
     Dosage: 1 DF, MONTHLY EYELEA INJECTIONS RIGHT EYE
     Dates: start: 2024
  7. EYLEA [Concomitant]
     Active Substance: AFLIBERCEPT
     Dates: start: 202507
  8. PREDNISOLONE [Concomitant]
     Active Substance: PREDNISOLONE
  9. PREDNISOLONE [Concomitant]
     Active Substance: PREDNISOLONE
     Dosage: 1 DF, 2X/DAY
     Dates: start: 202401
  10. MYCOPHENOLATE MOFETIL [Concomitant]
     Active Substance: MYCOPHENOLATE MOFETIL
     Dosage: 3 G, DAILY
  11. LEVOTHYROXINE [Concomitant]
     Active Substance: LEVOTHYROXINE

REACTIONS (3)
  - Cystoid macular oedema [Unknown]
  - Condition aggravated [Unknown]
  - Off label use [Unknown]

NARRATIVE: CASE EVENT DATE: 20240528
